FAERS Safety Report 25399211 (Version 2)
Quarter: 2025Q2

REPORT INFORMATION
  Report Type: Spontaneous
  Country: DE (occurrence: DE)
  Receive Date: 20250605
  Receipt Date: 20250616
  Transmission Date: 20250717
  Serious: Yes (Other)
  Sender: ALEXION PHARMACEUTICALS
  Company Number: DE-AstraZeneca-CH-00883170A

PATIENT
  Age: 76 Year

DRUGS (2)
  1. DAPAGLIFLOZIN [Suspect]
     Active Substance: DAPAGLIFLOZIN
     Indication: Chronic kidney disease
     Dosage: UNK, QD
  2. ELIQUIS [Concomitant]
     Active Substance: APIXABAN
     Indication: Hypertension

REACTIONS (1)
  - Hip fracture [Recovered/Resolved]
